FAERS Safety Report 4317855-1 (Version None)
Quarter: 2004Q1

REPORT INFORMATION
  Report Type: 
  Country: None (occurrence: None)
  Receive Date: 20040316
  Receipt Date: 20040305
  Transmission Date: 20041129
  Serious: Yes (Life-Threatening, Hospitalization, Disabling, Other)
  Sender: FDA-Public Use
  Company Number: GB-BRISTOL-MYERS SQUIBB COMPANY-12525291

PATIENT
  Age: 57 Year
  Sex: Male

DRUGS (3)
  1. CISPLATIN [Suspect]
     Indication: METASTATIC CARCINOMA OF THE BLADDER
     Route: 041
     Dates: start: 20040211
  2. GEMCITABINE [Concomitant]
     Indication: METASTATIC CARCINOMA OF THE BLADDER
     Dates: start: 20040211
  3. ONDANSETRON HCL [Concomitant]
     Indication: VOMITING
     Dates: start: 20040211

REACTIONS (5)
  - BACTERIAL SEPSIS [None]
  - CIRCULATORY COLLAPSE [None]
  - ELECTROENCEPHALOGRAM ABNORMAL [None]
  - STATUS EPILEPTICUS [None]
  - TREMOR [None]
